FAERS Safety Report 26169192 (Version 1)
Quarter: 2025Q4

REPORT INFORMATION
  Report Type: Spontaneous
  Country: US (occurrence: None)
  Receive Date: 20251216
  Receipt Date: 20251216
  Transmission Date: 20260118
  Serious: Yes (Life-Threatening)
  Sender: FDA-CTU
  Company Number: None

PATIENT
  Age: 45 Year
  Sex: Female
  Weight: 65.77 kg

DRUGS (9)
  1. SKYRIZI [Suspect]
     Active Substance: RISANKIZUMAB-RZAA
  2. BUPROPION [Concomitant]
     Active Substance: BUPROPION
  3. Neurotin [Concomitant]
  4. ESTRADIOL [Concomitant]
     Active Substance: ESTRADIOL
  5. ATORVASTATIN [Concomitant]
     Active Substance: ATORVASTATIN
  6. BUPRENORPHINE [Concomitant]
     Active Substance: BUPRENORPHINE
  7. ESCITALOPRAM [Concomitant]
     Active Substance: ESCITALOPRAM OXALATE
  8. OTEZLA [Concomitant]
     Active Substance: APREMILAST
  9. Acetaminophen Tylenol [Concomitant]

REACTIONS (3)
  - Squamous cell carcinoma of skin [None]
  - Injury associated with device [None]
  - Product quality issue [None]

NARRATIVE: CASE EVENT DATE: 20250219
